FAERS Safety Report 6915357-7 (Version None)
Quarter: 2010Q3

REPORT INFORMATION
  Report Type: 
  Country: None (occurrence: None)
  Receive Date: 20100809
  Receipt Date: 20100112
  Transmission Date: 20110219
  Serious: No
  Sender: FDA-Public Use
  Company Number: US-ABBOTT-10P-163-0619578-00

PATIENT
  Sex: Male
  Weight: 81.72 kg

DRUGS (6)
  1. DEPAKOTE ER [Suspect]
     Indication: MIGRAINE
     Dates: start: 20080811
  2. SULFA [Concomitant]
     Indication: PRODUCT USED FOR UNKNOWN INDICATION
     Dates: start: 20100101, end: 20100101
  3. BOTOX [Concomitant]
     Indication: MIGRAINE
  4. TREXAMET [Concomitant]
     Indication: MIGRAINE
  5. DIOMOX [Concomitant]
     Indication: MIGRAINE
  6. AMITRIPTYLINE HYDROCHLORIDE [Concomitant]
     Indication: MIGRAINE

REACTIONS (2)
  - OEDEMA [None]
  - RASH PAPULAR [None]
